FAERS Safety Report 10732698 (Version 7)
Quarter: 2015Q3

REPORT INFORMATION
  Report Type: Spontaneous
  Country: US (occurrence: US)
  Receive Date: 20150123
  Receipt Date: 20150730
  Transmission Date: 20151125
  Serious: Yes (Other)
  Sender: FDA-Public Use
  Company Number: US-BAYER-2015-005823

PATIENT
  Age: 16 Year
  Sex: Male
  Weight: 115 kg

DRUGS (5)
  1. KOGENATE FS [Suspect]
     Active Substance: ANTIHEMOPHILIC FACTOR, HUMAN RECOMBINANT
     Indication: FACTOR VIII DEFICIENCY
     Dosage: 5000 U, TIW
     Route: 040
     Dates: start: 20140213
  2. KOGENATE FS [Suspect]
     Active Substance: ANTIHEMOPHILIC FACTOR, HUMAN RECOMBINANT
     Indication: FACTOR VIII DEFICIENCY
     Dosage: 5000 IU, TIW AND AS NEEDED FOR BLEEDS
     Route: 042
  3. KOGENATE FS [Suspect]
     Active Substance: ANTIHEMOPHILIC FACTOR, HUMAN RECOMBINANT
     Indication: FACTOR VIII DEFICIENCY
     Dosage: 5000 IU, TIW AND AS NEEDED FOR BLEEDS
     Route: 042
  4. KOGENATE FS [Suspect]
     Active Substance: ANTIHEMOPHILIC FACTOR, HUMAN RECOMBINANT
     Indication: FACTOR VIII DEFICIENCY
     Dosage: 5000 U, TIW
     Route: 040
     Dates: start: 20140213
  5. KOGENATE FS [Suspect]
     Active Substance: ANTIHEMOPHILIC FACTOR, HUMAN RECOMBINANT
     Indication: FACTOR VIII DEFICIENCY
     Dosage: 5000 IU, TIW AND ?
     Route: 042

REACTIONS (8)
  - Contusion [None]
  - Haemarthrosis [None]
  - Haemorrhage [None]
  - Limb injury [None]
  - Back disorder [None]
  - Limb injury [Recovered/Resolved]
  - Haemarthrosis [None]
  - Dry skin [None]

NARRATIVE: CASE EVENT DATE: 20150105
